FAERS Safety Report 24134458 (Version 2)
Quarter: 2024Q3

REPORT INFORMATION
  Report Type: Report from Study
  Country: BG (occurrence: BG)
  Receive Date: 20240725
  Receipt Date: 20240816
  Transmission Date: 20241016
  Serious: Yes (Death)
  Sender: ABBVIE
  Company Number: BG-ABBVIE-5850401

PATIENT
  Age: 76 Year
  Sex: Male

DRUGS (2)
  1. CARBIDOPA\LEVODOPA [Suspect]
     Active Substance: CARBIDOPA\LEVODOPA
     Indication: Parkinson^s disease
     Dosage: MD- 6,5ML CR- 4,1ML/H EX- 1,0ML
     Route: 050
     Dates: start: 20240610, end: 20240720
  2. CARBIDOPA\LEVODOPA [Suspect]
     Active Substance: CARBIDOPA\LEVODOPA

REACTIONS (1)
  - Accident at home [Fatal]

NARRATIVE: CASE EVENT DATE: 20240701
